FAERS Safety Report 7164773-X (Version None)
Quarter: 2010Q4

REPORT INFORMATION
  Report Type: 
  Country: None (occurrence: None)
  Receive Date: 20101215
  Receipt Date: 20101206
  Transmission Date: 20110411
  Serious: Yes (Other)
  Sender: FDA-Public Use
  Company Number: US-ABBOTT-10P-163-0689680-00

PATIENT
  Sex: Female
  Weight: 86.26 kg

DRUGS (5)
  1. SYNTHROID [Suspect]
     Indication: THYROIDECTOMY
     Dosage: 4 HRS BEFORE OSCAL AND ACIPHEX QAM
     Route: 048
     Dates: start: 19830101
  2. SYNTHROID [Suspect]
     Dosage: GENERIC
     Dates: start: 19940101
  3. OSCAL [Concomitant]
     Indication: MINERAL SUPPLEMENTATION
  4. ACIPHEX [Concomitant]
     Indication: GASTROOESOPHAGEAL REFLUX DISEASE
  5. LYRICA [Concomitant]
     Indication: BACK PAIN

REACTIONS (6)
  - ALOPECIA [None]
  - BACK PAIN [None]
  - BENIGN NEOPLASM OF SPINAL CORD [None]
  - NEURALGIA [None]
  - TABLET ISSUE [None]
  - TONSILLAR DISORDER [None]
